FAERS Safety Report 9701259 (Version 2)
Quarter: 2013Q4

REPORT INFORMATION
  Report Type: Spontaneous
  Country: US (occurrence: US)
  Receive Date: 20131121
  Receipt Date: 20131121
  Transmission Date: 20140711
  Serious: Yes (Other)
  Sender: FDA-Public Use
  Company Number: US-GILEAD-2008-0016082

PATIENT
  Age: 69 Year
  Sex: Female
  Weight: 88.9 kg

DRUGS (7)
  1. LETAIRIS [Suspect]
     Indication: PULMONARY ARTERIAL HYPERTENSION
     Route: 048
     Dates: start: 20080222, end: 20080411
  2. HYDROCHLOROTHIAZIDE [Concomitant]
     Route: 048
  3. TOPROL XL [Concomitant]
     Route: 048
  4. ASA [Concomitant]
     Route: 048
  5. VITAMIN B12 [Concomitant]
     Route: 048
  6. VITAMIN B6 [Concomitant]
     Route: 048
  7. FOLIC ACID [Concomitant]
     Route: 048

REACTIONS (3)
  - Liver function test abnormal [None]
  - Haemoglobin decreased [None]
  - Haematocrit decreased [None]
